FAERS Safety Report 11282673 (Version 2)
Quarter: 2015Q3

REPORT INFORMATION
  Report Type: Spontaneous
  Country: US (occurrence: None)
  Receive Date: 20150716
  Receipt Date: 20150812
  Transmission Date: 20151125
  Serious: Yes (Other)
  Sender: FDA-Public Use
  Company Number: ADR-2015-01321

PATIENT
  Age: 37 Year
  Sex: Male

DRUGS (2)
  1. BACLOFEN (ORAL) [Suspect]
     Active Substance: BACLOFEN
  2. GABLOFEN [Suspect]
     Active Substance: BACLOFEN
     Indication: MUSCLE SPASTICITY

REACTIONS (3)
  - Musculoskeletal stiffness [None]
  - Condition aggravated [None]
  - Sepsis [None]
